FAERS Safety Report 18246041 (Version 1)
Quarter: 2020Q3

REPORT INFORMATION
  Report Type: Report from Study
  Country: IT (occurrence: IT)
  Receive Date: 20200909
  Receipt Date: 20200909
  Transmission Date: 20201103
  Serious: Yes (Hospitalization)
  Sender: FDA-Public Use
  Company Number: IT-TEVA-2020-IT-1824531

PATIENT
  Age: 5 Month
  Sex: Male

DRUGS (8)
  1. INSULIN LISPRO [Concomitant]
     Active Substance: INSULIN LISPRO
     Indication: TYPE 1 DIABETES MELLITUS
     Route: 058
  2. COUMADIN [Concomitant]
     Active Substance: WARFARIN SODIUM
  3. ESOMEPRAZOLE SODIUM. [Concomitant]
     Active Substance: ESOMEPRAZOLE SODIUM
  4. BISOPROLOL HEMIFUMARATE [Concomitant]
     Active Substance: BISOPROLOL FUMARATE
  5. CLOZAPINE. [Suspect]
     Active Substance: CLOZAPINE
     Indication: PARKINSONISM
     Dosage: 12.5MG
     Route: 048
     Dates: start: 20200629, end: 20200711
  6. PREGABALIN. [Concomitant]
     Active Substance: PREGABALIN
  7. CALCITRIOL. [Concomitant]
     Active Substance: CALCITRIOL
  8. CALCIFEDIOL [Concomitant]
     Active Substance: CALCIFEDIOL

REACTIONS (1)
  - Sopor [Recovered/Resolved]

NARRATIVE: CASE EVENT DATE: 20200701
